FAERS Safety Report 5470690-3 (Version None)
Quarter: 2007Q3

REPORT INFORMATION
  Report Type: 
  Country: None (occurrence: None)
  Receive Date: 20070928
  Receipt Date: 20070926
  Transmission Date: 20080115
  Serious: Yes (Other)
  Sender: FDA-Public Use
  Company Number: US-ASTRAZENECA-2007UW22491

PATIENT
  Age: 57 Year
  Sex: Male
  Weight: 101.8 kg

DRUGS (2)
  1. PRILOSEC [Suspect]
     Route: 048
  2. ANTIDEPRESSANTS [Concomitant]

REACTIONS (1)
  - SUICIDAL BEHAVIOUR [None]
